FAERS Safety Report 16234967 (Version 1)
Quarter: 2019Q2

REPORT INFORMATION
  Report Type: Spontaneous
  Country: US (occurrence: US)
  Receive Date: 20190424
  Receipt Date: 20190424
  Transmission Date: 20190711
  Serious: Yes (Other)
  Sender: FDA-Public Use
  Company Number: US-TEVA-2019-US-1042157

PATIENT
  Sex: Female

DRUGS (4)
  1. KLONOPIN [Suspect]
     Active Substance: CLONAZEPAM
     Route: 065
  2. GABAPENTIN ACTAVIS [Suspect]
     Active Substance: GABAPENTIN
     Dosage: 1200 MILLIGRAM DAILY;
  3. BACLOFEN. [Suspect]
     Active Substance: BACLOFEN
     Route: 065
  4. GABAPENTIN ACTAVIS [Suspect]
     Active Substance: GABAPENTIN
     Dosage: 900 MILLIGRAM DAILY;

REACTIONS (8)
  - Pain [Not Recovered/Not Resolved]
  - Malaise [Unknown]
  - Insomnia [Unknown]
  - Memory impairment [Not Recovered/Not Resolved]
  - Diarrhoea [Not Recovered/Not Resolved]
  - Depression [Not Recovered/Not Resolved]
  - Anxiety [Unknown]
  - Suicidal ideation [Not Recovered/Not Resolved]
